FAERS Safety Report 8233574-3 (Version None)
Quarter: 2012Q1

REPORT INFORMATION
  Report Type: 
  Country: None (occurrence: None)
  Receive Date: 20120326
  Receipt Date: 20120313
  Transmission Date: 20120608
  Serious: Yes (Hospitalization, Other)
  Sender: FDA-Public Use
  Company Number: PHHY2012CA023610

PATIENT
  Sex: Female

DRUGS (2)
  1. FEMARA [Suspect]
     Indication: BREAST CANCER
     Dosage: 2.5 MG, DAILY
     Route: 048
     Dates: start: 20111205
  2. RABEPRAZOLE SODIUM [Concomitant]

REACTIONS (9)
  - VULVOVAGINAL PRURITUS [None]
  - NAUSEA [None]
  - VOMITING [None]
  - CHEST PAIN [None]
  - RASH GENERALISED [None]
  - VULVOVAGINAL RASH [None]
  - HOT FLUSH [None]
  - PRURITUS GENERALISED [None]
  - DIARRHOEA [None]
